FAERS Safety Report 9772983 (Version 1)
Quarter: 2013Q4

REPORT INFORMATION
  Report Type: Spontaneous
  Country: US (occurrence: None)
  Receive Date: 20131218
  Receipt Date: 20131218
  Transmission Date: 20140711
  Serious: Yes (Life-Threatening, Hospitalization)
  Sender: FDA-Public Use
  Company Number: None

PATIENT
  Age: 65 Year
  Sex: Male
  Weight: 89.5 kg

DRUGS (1)
  1. PIPERACILLIN/TAZOBACTAM [Suspect]
     Route: 042
     Dates: start: 20131203, end: 20131203

REACTIONS (6)
  - Anaphylactic reaction [None]
  - Cardiac arrest [None]
  - Sinus tachycardia [None]
  - Ventricular tachycardia [None]
  - Infusion related reaction [None]
  - Erythema [None]
